FAERS Safety Report 6012461-5 (Version None)
Quarter: 2008Q4

REPORT INFORMATION
  Report Type: 
  Country: None (occurrence: None)
  Receive Date: 20081216
  Receipt Date: 20080619
  Transmission Date: 20090506
  Serious: Yes (Other)
  Sender: FDA-Public Use
  Company Number: US-WYE-H04643108

PATIENT
  Age: 62 Year
  Sex: Female
  Weight: 69.92 kg

DRUGS (10)
  1. EFFEXOR XR [Suspect]
     Indication: ANXIETY
     Dosage: SEE IMAGE
     Route: 048
     Dates: end: 20080301
  2. EFFEXOR XR [Suspect]
     Indication: PANIC ATTACK
     Dosage: SEE IMAGE
     Route: 048
     Dates: end: 20080301
  3. EFFEXOR XR [Suspect]
     Indication: ANXIETY
     Dosage: SEE IMAGE
     Route: 048
     Dates: start: 20000101
  4. EFFEXOR XR [Suspect]
     Indication: PANIC ATTACK
     Dosage: SEE IMAGE
     Route: 048
     Dates: start: 20000101
  5. EFFEXOR XR [Suspect]
     Indication: ANXIETY
     Dosage: SEE IMAGE
     Route: 048
     Dates: start: 20080101
  6. EFFEXOR XR [Suspect]
     Indication: PANIC ATTACK
     Dosage: SEE IMAGE
     Route: 048
     Dates: start: 20080101
  7. DIOVAN [Concomitant]
  8. SIMVASTATIN [Concomitant]
  9. GLYBURIDE [Concomitant]
  10. METFORMIN HCL [Concomitant]

REACTIONS (2)
  - CHOKING SENSATION [None]
  - DYSPHAGIA [None]
